FAERS Safety Report 23093525 (Version 1)
Quarter: 2023Q4

REPORT INFORMATION
  Report Type: Spontaneous
  Country: US (occurrence: US)
  Receive Date: 20231023
  Receipt Date: 20231023
  Transmission Date: 20240110
  Serious: No
  Sender: FDA-Public Use
  Company Number: US-Teikoku Pharma USA-TPU2023-00532

PATIENT
  Sex: Female
  Weight: 81.72 kg

DRUGS (1)
  1. LIDOCAINE PATCH [Suspect]
     Active Substance: LIDOCAINE
     Indication: Sciatica
     Route: 061
     Dates: start: 20230503

REACTIONS (4)
  - Drug ineffective for unapproved indication [Unknown]
  - Pain [Unknown]
  - Blood pressure increased [Unknown]
  - Dyspnoea [Unknown]
